FAERS Safety Report 11740572 (Version 2)
Quarter: 2015Q4

REPORT INFORMATION
  Report Type: Spontaneous
  Country: US (occurrence: US)
  Receive Date: 20151110
  Receipt Date: 20151120
  Transmission Date: 20160304
  Serious: No
  Sender: FDA-Public Use
  Company Number: US-ELI_LILLY_AND_COMPANY-US201201004862

PATIENT
  Sex: Female

DRUGS (2)
  1. FORTEO [Suspect]
     Active Substance: TERIPARATIDE
     Indication: OSTEOPOROSIS
     Dosage: UNK UNK, QD
     Route: 065
     Dates: start: 201111
  2. FORTEO [Suspect]
     Active Substance: TERIPARATIDE
     Dosage: UNK UNK, QD
     Route: 065

REACTIONS (11)
  - Graft complication [Recovering/Resolving]
  - Dizziness [Unknown]
  - Joint injury [Unknown]
  - Fall [Unknown]
  - Asthenia [Unknown]
  - Cerebral disorder [Unknown]
  - Wound [Unknown]
  - Impaired healing [Not Recovered/Not Resolved]
  - Skin haemorrhage [Unknown]
  - Limb injury [Unknown]
  - Nasopharyngitis [Unknown]
